FAERS Safety Report 6167769-X (Version None)
Quarter: 2009Q2

REPORT INFORMATION
  Report Type: 
  Country: None (occurrence: None)
  Receive Date: 20090427
  Receipt Date: 20090415
  Transmission Date: 20091009
  Serious: Yes (Hospitalization)
  Sender: FDA-Public Use
  Company Number: JP-SANOFI-SYNTHELABO-A01200816546

PATIENT
  Sex: Male

DRUGS (7)
  1. MAGNESIUM OXIDE [Concomitant]
     Dates: start: 20070101, end: 20080430
  2. RHYTHMY [Concomitant]
     Dates: start: 20070101, end: 20080430
  3. CALCIUM LEVOFOLINATE [Suspect]
     Indication: DRUG USE FOR UNKNOWN INDICATION
     Dosage: UNK
     Route: 041
  4. FLUOROURACIL [Suspect]
     Indication: DRUG USE FOR UNKNOWN INDICATION
     Dosage: UNK
     Route: 042
  5. AVASTIN [Suspect]
     Indication: COLON CANCER METASTATIC
     Dosage: 5 MG/KG
     Route: 041
     Dates: start: 20080526, end: 20080526
  6. ELPLAT [Suspect]
     Indication: DRUG USE FOR UNKNOWN INDICATION
     Dosage: UNK
     Route: 041
     Dates: start: 20080204, end: 20080204
  7. LOXEBERON [Concomitant]
     Dates: start: 20070101, end: 20080430

REACTIONS (8)
  - ACUTE MYOCARDIAL INFARCTION [None]
  - DIARRHOEA [None]
  - EPISTAXIS [None]
  - FATIGUE [None]
  - NAUSEA [None]
  - NEUROPATHY PERIPHERAL [None]
  - RASH [None]
  - STOMATITIS [None]
